FAERS Safety Report 18995618 (Version 1)
Quarter: 2021Q1

REPORT INFORMATION
  Report Type: Spontaneous
  Country: US (occurrence: US)
  Receive Date: 20210311
  Receipt Date: 20210311
  Transmission Date: 20210420
  Serious: No
  Sender: FDA-Public Use
  Company Number: US-ALLERGAN-2031355US

PATIENT
  Sex: Female

DRUGS (7)
  1. REMERON [Concomitant]
     Active Substance: MIRTAZAPINE
     Indication: ANXIETY
  2. REMERON [Concomitant]
     Active Substance: MIRTAZAPINE
     Indication: DEPRESSION
     Route: 048
  3. CELEXA [Concomitant]
     Active Substance: CITALOPRAM HYDROBROMIDE
     Indication: ANXIETY
     Route: 048
  4. VIIBRYD [Suspect]
     Active Substance: VILAZODONE HYDROCHLORIDE
     Dosage: 5 MG, QD
     Route: 048
  5. CELEXA [Concomitant]
     Active Substance: CITALOPRAM HYDROBROMIDE
     Indication: DEPRESSION
  6. VIIBRYD [Suspect]
     Active Substance: VILAZODONE HYDROCHLORIDE
     Indication: ANXIETY
     Dosage: 20 MG, QD
     Route: 048
  7. VIIBRYD [Suspect]
     Active Substance: VILAZODONE HYDROCHLORIDE
     Indication: DEPRESSION
     Dosage: 10 MG, QD
     Route: 048

REACTIONS (7)
  - Dyspepsia [Not Recovered/Not Resolved]
  - Nausea [Recovered/Resolved]
  - Feeling jittery [Not Recovered/Not Resolved]
  - Wrong technique in product usage process [Unknown]
  - Off label use [Unknown]
  - Insomnia [Not Recovered/Not Resolved]
  - Drug ineffective [Unknown]
